FAERS Safety Report 8813919 (Version 2)
Quarter: 2015Q2

REPORT INFORMATION
  Report Type: Report from Study
  Country: US (occurrence: US)
  Receive Date: 20120928
  Receipt Date: 20150623
  Transmission Date: 20150821
  Serious: Yes (Death)
  Sender: FDA-Public Use
  Company Number: US-ROCHE-1097633

PATIENT
  Sex: Female

DRUGS (10)
  1. AVASTIN [Suspect]
     Active Substance: BEVACIZUMAB
     Indication: BREAST CANCER
     Route: 042
  2. COUMADINE [Concomitant]
     Active Substance: WARFARIN SODIUM
     Route: 065
  3. ALOXI [Concomitant]
     Active Substance: PALONOSETRON HYDROCHLORIDE
     Route: 065
  4. ZOMETA [Concomitant]
     Active Substance: ZOLEDRONIC ACID
     Route: 065
  5. ARANESP [Concomitant]
     Active Substance: DARBEPOETIN ALFA
     Route: 065
  6. ABRAXANE [Concomitant]
     Active Substance: PACLITAXEL
     Route: 065
  7. IXEMPRA [Concomitant]
     Active Substance: IXABEPILONE
     Route: 065
  8. ABRAXANE [Concomitant]
     Active Substance: PACLITAXEL
     Route: 065
  9. HERCEPTIN [Suspect]
     Active Substance: TRASTUZUMAB
     Indication: BREAST CANCER
     Route: 042
  10. HERCEPTIN [Suspect]
     Active Substance: TRASTUZUMAB
     Route: 042
     Dates: start: 20080505

REACTIONS (7)
  - Breast cancer metastatic [Unknown]
  - Myalgia [Unknown]
  - Alopecia [Unknown]
  - Death [Fatal]
  - Pelvi-ureteric obstruction [Unknown]
  - Pyrexia [Unknown]
  - Arthralgia [Unknown]
